FAERS Safety Report 4387186-2 (Version None)
Quarter: 2004Q2

REPORT INFORMATION
  Report Type: 
  Country: None (occurrence: None)
  Receive Date: 20040630
  Receipt Date: 20040322
  Transmission Date: 20050107
  Serious: No
  Sender: FDA-Public Use
  Company Number: US-GLAXOSMITHKLINE-A0503832A

PATIENT
  Age: 73 Year
  Sex: Male

DRUGS (4)
  1. ADVAIR HFA [Suspect]
     Indication: ASTHMA
     Dosage: 1BLS TWICE PER DAY
     Route: 055
     Dates: end: 20040318
  2. ALBUTEROL [Concomitant]
  3. AVAPRO [Concomitant]
  4. THYROID TAB [Concomitant]

REACTIONS (2)
  - DYSPNOEA [None]
  - WHEEZING [None]
